FAERS Safety Report 6291515-2 (Version None)
Quarter: 2009Q3

REPORT INFORMATION
  Report Type: 
  Country: None (occurrence: None)
  Receive Date: 20090730
  Receipt Date: 20090727
  Transmission Date: 20100115
  Serious: Yes (Other)
  Sender: FDA-Public Use
  Company Number: US-SANOFI-SYNTHELABO-A03200901500

PATIENT
  Sex: Female
  Weight: 90.7 kg

DRUGS (6)
  1. AMBIEN CR [Suspect]
     Indication: SLEEP DISORDER
     Dosage: ONE HALF TABLET AT BEDTIME
     Route: 048
     Dates: start: 20050101
  2. SYNTHROID [Concomitant]
     Indication: HYPOTHYROIDISM
     Route: 065
     Dates: start: 20000101
  3. XANAX [Concomitant]
     Indication: DRUG USE FOR UNKNOWN INDICATION
     Route: 065
  4. TRAZODONE HCL [Concomitant]
     Indication: DRUG USE FOR UNKNOWN INDICATION
     Route: 065
     Dates: start: 20060101
  5. LISINOPRIL [Concomitant]
     Indication: HYPERTENSION
     Dosage: 20/12.5 ONE PER DAY
     Route: 048
     Dates: start: 20000101
  6. AMBIEN [Suspect]
     Indication: INSOMNIA
     Route: 048
     Dates: start: 19960501, end: 20070401

REACTIONS (10)
  - AMNESIA [None]
  - ANGER [None]
  - DRUG ABUSE [None]
  - DRUG INEFFECTIVE [None]
  - FLUSHING [None]
  - LOSS OF CONSCIOUSNESS [None]
  - MOOD ALTERED [None]
  - ROAD TRAFFIC ACCIDENT [None]
  - SUICIDAL IDEATION [None]
  - WRONG TECHNIQUE IN DRUG USAGE PROCESS [None]
